FAERS Safety Report 10202696 (Version 1)
Quarter: 2014Q2

REPORT INFORMATION
  Report Type: Spontaneous
  Country: IT (occurrence: IT)
  Receive Date: 20140528
  Receipt Date: 20140528
  Transmission Date: 20141212
  Serious: Yes (Hospitalization)
  Sender: FDA-Public Use
  Company Number: IT-WATSON-2014-10706

PATIENT
  Age: 39 Year
  Sex: Female

DRUGS (2)
  1. DIAZEPAM (UNKNOWN) [Suspect]
     Indication: INSOMNIA
     Dosage: 100 MG, DAILY
     Route: 048
     Dates: start: 20110920, end: 20120920
  2. ZOLPIDEM (UNKNOWN) [Suspect]
     Indication: INSOMNIA
     Dosage: 300 MG, DAILY
     Route: 048
     Dates: start: 20110920, end: 20120920

REACTIONS (1)
  - Drug dependence [Recovering/Resolving]
